FAERS Safety Report 22899953 (Version 2)
Quarter: 2025Q1

REPORT INFORMATION
  Report Type: Spontaneous
  Country: CH (occurrence: CH)
  Receive Date: 20230904
  Receipt Date: 20250120
  Transmission Date: 20250409
  Serious: Yes (Hospitalization)
  Sender: LEO PHARM
  Company Number: CH-LEO Pharma-362221

PATIENT
  Sex: Male

DRUGS (1)
  1. ADBRY [Suspect]
     Active Substance: TRALOKINUMAB-LDRM
     Indication: Dermatitis atopic
     Dates: start: 202305

REACTIONS (3)
  - Therapy cessation [Unknown]
  - Gastrointestinal disorder [Unknown]
  - Mesenteric panniculitis [Unknown]

NARRATIVE: CASE EVENT DATE: 20230701
